FAERS Safety Report 19192933 (Version 2)
Quarter: 2021Q2

REPORT INFORMATION
  Report Type: Report from Study
  Country: CA (occurrence: CA)
  Receive Date: 20210429
  Receipt Date: 20210601
  Transmission Date: 20210717
  Serious: Yes (Other)
  Sender: FDA-Public Use
  Company Number: CA-JNJFOC-20210454652

PATIENT
  Age: 56 Year
  Sex: Female
  Weight: 63 kg

DRUGS (2)
  1. SIMPONI [Suspect]
     Active Substance: GOLIMUMAB
     Indication: COLITIS ULCERATIVE
     Dosage: EXPIRY DATE?30?APR?2023
     Route: 058
     Dates: start: 20180926
  2. SIMPONI [Suspect]
     Active Substance: GOLIMUMAB
     Indication: RHEUMATOID ARTHRITIS

REACTIONS (5)
  - Sinusitis [Unknown]
  - Tooth infection [Not Recovered/Not Resolved]
  - Pneumonia [Recovered/Resolved]
  - Rheumatoid arthritis [Not Recovered/Not Resolved]
  - Colitis ulcerative [Not Recovered/Not Resolved]

NARRATIVE: CASE EVENT DATE: 2021
